FAERS Safety Report 12200376 (Version 2)
Quarter: 2016Q1

REPORT INFORMATION
  Report Type: Spontaneous
  Country: JP (occurrence: JP)
  Receive Date: 20160322
  Receipt Date: 20160324
  Transmission Date: 20160526
  Serious: Yes (Death, Other)
  Sender: FDA-Public Use
  Company Number: JP-ASTRAZENECA-2016SE29533

PATIENT
  Age: 86 Year

DRUGS (9)
  1. SPIRONOLACTONE. [Suspect]
     Active Substance: SPIRONOLACTONE
     Route: 065
     Dates: start: 20160213, end: 20160218
  2. TANATRIL [Concomitant]
     Active Substance: IMIDAPRIL
     Dates: start: 20160213, end: 20160218
  3. BAYASPIRIN [Concomitant]
     Active Substance: ASPIRIN
     Dates: start: 20160211, end: 20160218
  4. ATORVASTATIN CALCIUM. [Concomitant]
     Active Substance: ATORVASTATIN CALCIUM
     Dates: start: 20130913, end: 20160218
  5. TENELIA [Concomitant]
     Active Substance: TENELIGLIPTIN
     Dates: start: 20160213, end: 20160218
  6. BISOPROLOL [Concomitant]
     Active Substance: BISOPROLOL
     Dates: start: 20130913, end: 20160218
  7. FORXIGA [Suspect]
     Active Substance: DAPAGLIFLOZIN
     Dosage: DOSE UNKNOWN
     Route: 048
     Dates: start: 20160216, end: 20160218
  8. CLOPIDOGREL [Concomitant]
     Active Substance: CLOPIDOGREL BISULFATE
     Dates: start: 20130913, end: 20160218
  9. LANSOPRAZOLE. [Concomitant]
     Active Substance: LANSOPRAZOLE
     Dates: start: 20130913, end: 20160218

REACTIONS (2)
  - Brain stem infarction [Fatal]
  - Cerebral infarction [Fatal]

NARRATIVE: CASE EVENT DATE: 20160218
